FAERS Safety Report 4534485-7 (Version None)
Quarter: 2004Q4

REPORT INFORMATION
  Report Type: 
  Country: None (occurrence: None)
  Receive Date: 20041214
  Receipt Date: 20041013
  Transmission Date: 20050328
  Serious: No
  Sender: FDA-Public Use
  Company Number: 2004241240US

PATIENT
  Age: 85 Year
  Sex: Female
  Weight: 77.1 kg

DRUGS (6)
  1. BEXTRA [Suspect]
     Indication: ARTHRITIS
     Dosage: 10 MG, QD, ORAL
     Route: 047
     Dates: start: 20040101
  2. NORMODYNE [Concomitant]
  3. HYZAAR [Concomitant]
  4. ZOCOR [Concomitant]
  5. COUMADIN [Concomitant]
  6. NEXIUM [Concomitant]

REACTIONS (2)
  - INSOMNIA [None]
  - PSYCHOMOTOR HYPERACTIVITY [None]
